FAERS Safety Report 8755898 (Version 2)
Quarter: 2013Q4

REPORT INFORMATION
  Report Type: Spontaneous
  Country: US (occurrence: US)
  Receive Date: 20120827
  Receipt Date: 20131101
  Transmission Date: 20140711
  Serious: No
  Sender: FDA-Public Use
  Company Number: US-009507513-1204USA02355

PATIENT
  Age: 52 Year
  Sex: Female

DRUGS (2)
  1. AZASITE [Suspect]
     Dosage: ONE DROP IN BOTH EYES, BID
     Route: 047
     Dates: start: 20120411, end: 20120413
  2. ATIVAN [Concomitant]
     Dosage: UNK UNK, QD

REACTIONS (3)
  - Eye swelling [Recovering/Resolving]
  - Eye irritation [Recovering/Resolving]
  - Eye pain [Recovering/Resolving]
